FAERS Safety Report 6105012-8 (Version None)
Quarter: 2009Q1

REPORT INFORMATION
  Report Type: 
  Country: None (occurrence: None)
  Receive Date: 20090306
  Receipt Date: 20090224
  Transmission Date: 20090719
  Serious: Yes (Other)
  Sender: FDA-Public Use
  Company Number: US-BAYER-200839842NA

PATIENT
  Age: 33 Year
  Sex: Female
  Weight: 86 kg

DRUGS (2)
  1. MIRENA [Suspect]
     Indication: CONTRACEPTION
     Route: 015
     Dates: start: 20051212, end: 20081113
  2. SYNTHROID [Concomitant]
     Indication: HYPOTHYROIDISM
     Route: 048
     Dates: start: 20050801

REACTIONS (3)
  - PAIN [None]
  - PELVIC INFECTION [None]
  - UTERINE RUPTURE [None]
